FAERS Safety Report 9511176 (Version 1)
Quarter: 2013Q3

REPORT INFORMATION
  Report Type: Spontaneous
  Country: US (occurrence: None)
  Receive Date: 20130909
  Receipt Date: 20130909
  Transmission Date: 20140515
  Serious: Yes (Disabling)
  Sender: FDA-Public Use
  Company Number: None

PATIENT
  Age: 38 Year
  Sex: Female
  Weight: 67.59 kg

DRUGS (1)
  1. APLISOL [Suspect]
     Indication: TUBERCULIN TEST
     Dates: start: 20130121

REACTIONS (9)
  - Wrong technique in drug usage process [None]
  - Pyrexia [None]
  - Cellulitis [None]
  - Abscess [None]
  - Pain [None]
  - Lymph node pain [None]
  - Escherichia test positive [None]
  - Enterococcus test positive [None]
  - Injection site streaking [None]
